FAERS Safety Report 5422939-0 (Version None)
Quarter: 2007Q3

REPORT INFORMATION
  Report Type: 
  Country: None (occurrence: None)
  Receive Date: 20070820
  Receipt Date: 20070803
  Transmission Date: 20080115
  Serious: Yes (Life-Threatening, Hospitalization)
  Sender: FDA-Public Use
  Company Number: DSA_30222_2007

PATIENT
  Sex: Female

DRUGS (5)
  1. LORAZEPAM [Suspect]
     Dosage: (70 DF 1X NOT THE PRESCRIBED AMOUNT. ORAL)
     Route: 048
     Dates: start: 20070706, end: 20070706
  2. DOXEPIN HCL [Suspect]
     Dosage: (ORAL)
     Route: 048
     Dates: start: 20070706, end: 20070706
  3. MELPERONE (MELPERONE) [Suspect]
     Dosage: (ORAL)
     Dates: start: 20070706, end: 20070706
  4. OMEPRAZOLE [Suspect]
     Dosage: (ORAL)
     Route: 048
     Dates: start: 20070706, end: 20070706
  5. ZOPICLONE (ZOPICLONE) [Suspect]
     Dosage: (ORAL)
     Route: 048
     Dates: start: 20070706, end: 20070706

REACTIONS (4)
  - OVERDOSE [None]
  - RHABDOMYOLYSIS [None]
  - SOMNOLENCE [None]
  - SUICIDE ATTEMPT [None]
